FAERS Safety Report 23310124 (Version 1)
Quarter: 2023Q4

REPORT INFORMATION
  Report Type: Spontaneous
  Country: IT (occurrence: IT)
  Receive Date: 20231218
  Receipt Date: 20231218
  Transmission Date: 20240109
  Serious: Yes (Other)
  Sender: FDA-Public Use
  Company Number: None

PATIENT
  Age: 71 Year
  Weight: 60 kg

DRUGS (2)
  1. OXALIPLATIN [Suspect]
     Active Substance: OXALIPLATIN
     Indication: Colon cancer
     Dosage: START OF THERAPY 05/30/2023 - 1ST CYCLE - THERAPY EVERY 21 DAYS, DURATION: 1 DAY
     Route: 042
     Dates: start: 20230530, end: 20230530
  2. CAPECITABINE [Suspect]
     Active Substance: CAPECITABINE
     Indication: Colon cancer
     Dosage: START OF THERAPY 05/31/2023 - 1ST CYCLE - THERAPY FOR 14 DAYS, EVERY 21 DAYS, DAILY DOSE: 3000 MG...
     Route: 048
     Dates: start: 20230531, end: 20230613

REACTIONS (3)
  - Neutropenia [Recovering/Resolving]
  - Diarrhoea [Recovering/Resolving]
  - Leukopenia [Recovering/Resolving]

NARRATIVE: CASE EVENT DATE: 20230613
